FAERS Safety Report 8143789-0 (Version None)
Quarter: 2012Q1

REPORT INFORMATION
  Report Type: 
  Country: None (occurrence: None)
  Receive Date: 20120103
  Receipt Date: 20111008
  Transmission Date: 20120608
  Serious: No
  Sender: FDA-Public Use
  Company Number: AE-2011-002175

PATIENT
  Age: 58 Year
  Sex: Female
  Weight: 90.7194 kg

DRUGS (5)
  1. FOLIC ACID [Concomitant]
  2. RIBAVIRIN [Concomitant]
  3. FERROUS SULFATE TAB [Concomitant]
  4. INCIVEK [Suspect]
     Dosage: 2250 MG (750 MG, 1 IN 8 HR), ORAL
     Route: 048
     Dates: start: 20110930
  5. PEGASYS [Concomitant]

REACTIONS (3)
  - RASH [None]
  - PROCTALGIA [None]
  - DIARRHOEA [None]
